FAERS Safety Report 21000927 (Version 7)
Quarter: 2022Q4

REPORT INFORMATION
  Report Type: Spontaneous
  Country: US (occurrence: US)
  Receive Date: 20220624
  Receipt Date: 20221018
  Transmission Date: 20230113
  Serious: Yes (Hospitalization, Other)
  Sender: FDA-Public Use
  Company Number: US-BoehringerIngelheim-2022-BI-177767

PATIENT
  Age: 61 Year
  Sex: Female

DRUGS (1)
  1. MOBIC [Suspect]
     Active Substance: MELOXICAM
     Indication: Arthritis
     Route: 065
     Dates: start: 20220324, end: 20220513

REACTIONS (8)
  - Perforated ulcer [Recovering/Resolving]
  - Wound secretion [Unknown]
  - Constipation [Unknown]
  - Vomiting [Unknown]
  - Regurgitation [Unknown]
  - Pain [Unknown]
  - Asthenia [Unknown]
  - Mobility decreased [Unknown]

NARRATIVE: CASE EVENT DATE: 20220501
